FAERS Safety Report 13740195 (Version 1)
Quarter: 2017Q3

REPORT INFORMATION
  Report Type: Spontaneous
  Country: US (occurrence: US)
  Receive Date: 20170711
  Receipt Date: 20170711
  Transmission Date: 20171127
  Serious: No
  Sender: FDA-Public Use
  Company Number: US-ALKERMES INC.-ALK-2017-001430

PATIENT
  Age: 34 Year
  Sex: Male

DRUGS (2)
  1. ARISTADA [Suspect]
     Active Substance: ARIPIPRAZOLE LAUROXIL
     Indication: SCHIZOPHRENIA
     Dosage: 441 MG QMO
     Dates: start: 20170302
  2. ARISTADA [Suspect]
     Active Substance: ARIPIPRAZOLE LAUROXIL
     Dosage: 662 MG, QMO
     Route: 030
     Dates: start: 20170330

REACTIONS (6)
  - Hallucination, auditory [Unknown]
  - Agitation [Unknown]
  - Drug administered at inappropriate site [Unknown]
  - Insomnia [Unknown]
  - Therapeutic response shortened [Unknown]
  - Anxiety [Unknown]

NARRATIVE: CASE EVENT DATE: 201703
